FAERS Safety Report 19698838 (Version 3)
Quarter: 2023Q2

REPORT INFORMATION
  Report Type: Spontaneous
  Country: PK (occurrence: PK)
  Receive Date: 20210813
  Receipt Date: 20230607
  Transmission Date: 20230721
  Serious: Yes (Other)
  Sender: FDA-Public Use
  Company Number: PK-MLMSERVICE-20210729-3021672-1

PATIENT
  Age: 22 Year
  Sex: Female

DRUGS (2)
  1. CIPROFLOXACIN HYDROCHLORIDE [Suspect]
     Active Substance: CIPROFLOXACIN HYDROCHLORIDE
     Indication: Urinary tract infection
     Dosage: 500 MG, 2X/DAY (EVERY 12 HOURS)
     Route: 048
  2. ACETAMINOPHEN [Concomitant]
     Active Substance: ACETAMINOPHEN
     Indication: Urinary tract infection
     Dosage: UNK
     Route: 048

REACTIONS (2)
  - Pancytopenia [Recovered/Resolved]
  - Myelosuppression [Recovered/Resolved]
